FAERS Safety Report 6754947-1 (Version None)
Quarter: 2010Q2

REPORT INFORMATION
  Report Type: 
  Country: None (occurrence: None)
  Receive Date: 20100602
  Receipt Date: 20100520
  Transmission Date: 20101027
  Serious: Yes (Other)
  Sender: FDA-Public Use
  Company Number: 012345

PATIENT
  Sex: Male

DRUGS (1)
  1. KEPPRA [Suspect]
     Dosage: ORAL
     Route: 048

REACTIONS (2)
  - APHAGIA [None]
  - INTRACRANIAL PRESSURE INCREASED [None]
